FAERS Safety Report 7062088-1 (Version None)
Quarter: 2010Q4

REPORT INFORMATION
  Report Type: 
  Country: None (occurrence: None)
  Receive Date: 20101026
  Receipt Date: 20101012
  Transmission Date: 20110411
  Serious: Yes (Death, Hospitalization, Other)
  Sender: FDA-Public Use
  Company Number: PHEH2006US10879

PATIENT
  Sex: Male
  Weight: 83.9 kg

DRUGS (48)
  1. ZOMETA [Suspect]
     Dosage: UNK
     Dates: end: 20060101
  2. LOPRESSOR [Concomitant]
     Dosage: 25 MG, BID
  3. IMDUR [Concomitant]
     Dosage: 30 MG, QD
  4. METOPROLOL [Concomitant]
     Dosage: 50 MG, UNK
  5. FAMOTIDINE [Concomitant]
     Dosage: 20 MG, UNK
  6. DIAZEPAM [Concomitant]
     Dosage: 5 MG, UNK
  7. TEMAZEPAM [Concomitant]
     Dosage: 15 MG, UNK
  8. CALCIUM CHLORIDE [Concomitant]
  9. PLAVIX [Concomitant]
     Dosage: 75 MG, BIW
     Route: 048
  10. ALPRAZOLAM [Concomitant]
  11. ASPIRIN [Concomitant]
     Dosage: 325 MG, QD
     Route: 048
  12. ATIVAN [Concomitant]
  13. CASODEX [Concomitant]
  14. EFFEXOR [Concomitant]
  15. ELDERTONIC [Concomitant]
  16. ELIGARD [Concomitant]
  17. FLOMAX [Concomitant]
  18. K-DUR [Concomitant]
  19. LIPITOR [Concomitant]
  20. NITROGLYCERIN [Concomitant]
     Dosage: UNK
     Route: 042
  21. OXYCODONE HCL [Concomitant]
  22. OXYCONTIN [Concomitant]
  23. PHENERGAN [Concomitant]
     Indication: PAIN
     Dosage: 25 MG, Q3H, AS NEEDED
     Route: 030
  24. PRILOSEC [Concomitant]
  25. PROZAC [Concomitant]
  26. RESTORIL [Concomitant]
  27. SENOKOT [Concomitant]
  28. TRIAMTERENE AND HYDROCHLOROTHIAZID ^HARRIS^ [Concomitant]
  29. TRILISATE [Concomitant]
  30. QUADRAMET [Concomitant]
  31. RADIATION [Concomitant]
  32. NEXIUM [Concomitant]
  33. THIAZIDE DERIVATIVES [Concomitant]
  34. VALIUM [Concomitant]
     Indication: NERVOUSNESS
     Dosage: 5-10 MG, EVERY 6 HRS AS NEEDED
     Route: 048
  35. DEMEROL [Concomitant]
     Dosage: 75 MG, UNK
  36. EMPIRIN [Concomitant]
     Dosage: EVERY 3 HRS AR NEEDED
  37. BENADRYL [Concomitant]
     Dosage: 50 MG
     Route: 048
  38. ATROPINE [Concomitant]
     Dosage: 0.8 MG
  39. REOPRO [Concomitant]
     Dosage: UNK
     Route: 042
  40. NITROGLYCERIN [Concomitant]
     Dosage: 1 INCH TO CHEST WALL EVERY 6 HRS
  41. ENOXAPARIN SODIUM [Concomitant]
     Dosage: 1 MG/KG
     Route: 058
  42. HEPARIN [Concomitant]
     Dosage: 25000/250 CC
     Route: 042
  43. NUBAIN [Concomitant]
     Dosage: 5 MG, UNK
     Route: 042
  44. PEPCID [Concomitant]
     Dosage: 20 MG, BID
     Route: 048
  45. TYLOX [Concomitant]
     Indication: PAIN
     Dosage: UNK
  46. KETOROLAC TROMETHAMINE [Concomitant]
     Dosage: 15 MG/0.5 ML
     Route: 042
  47. MYLANTA [Concomitant]
     Indication: DYSPEPSIA
     Dosage: 30 CC
     Route: 048
  48. METHADONE [Concomitant]
     Dosage: 5 MG, BID

REACTIONS (38)
  - ANXIETY [None]
  - AORTIC DISORDER [None]
  - ARTHRALGIA [None]
  - BLADDER OBSTRUCTION [None]
  - BONE DISORDER [None]
  - COLONIC POLYP [None]
  - COUGH [None]
  - DEATH [None]
  - DEHYDRATION [None]
  - DISORIENTATION [None]
  - DIVERTICULUM INTESTINAL [None]
  - FIBROSIS [None]
  - GINGIVAL ATROPHY [None]
  - HYDRONEPHROSIS [None]
  - HYPOTENSION [None]
  - INJURY [None]
  - INSOMNIA [None]
  - JAW OPERATION [None]
  - LETHARGY [None]
  - LYMPHADENOPATHY [None]
  - METASTASES TO BONE [None]
  - MUSCULOSKELETAL PAIN [None]
  - ORTHOSTATIC HYPOTENSION [None]
  - OSTEONECROSIS OF JAW [None]
  - PAIN [None]
  - PANCREATIC ATROPHY [None]
  - PENILE OEDEMA [None]
  - PNEUMONIA [None]
  - POLYPECTOMY [None]
  - PYREXIA [None]
  - RENAL FAILURE CHRONIC [None]
  - RETROPERITONEAL LYMPHADENOPATHY [None]
  - SEPSIS [None]
  - SPUTUM DISCOLOURED [None]
  - URETERAL STENT INSERTION [None]
  - URETERIC OBSTRUCTION [None]
  - URINARY TRACT INFECTION [None]
  - VOMITING [None]
